FAERS Safety Report 7442550-X (Version None)
Quarter: 2011Q2

REPORT INFORMATION
  Report Type: 
  Country: None (occurrence: None)
  Receive Date: 20110419
  Receipt Date: 20110402
  Transmission Date: 20111010
  Serious: No
  Sender: FDA-Public Use
  Company Number: 2011-0710

PATIENT
  Age: 50 Year
  Sex: Female

DRUGS (4)
  1. MOTILIUM [Concomitant]
  2. MADOPAR (MADOPAR /00349201/) [Concomitant]
  3. APO-GO AMPOULES (APO-GO) (APOMORPHINE HYDROCHLORIDE) [Suspect]
     Indication: PARKINSON'S DISEASE
     Dosage: 1-3 MG/HOUR/ DAY (1 IN 1 HR),PARENTERAL
     Route: 051
     Dates: start: 20110225, end: 20110307
  4. STALEVO (STALEVO) [Concomitant]

REACTIONS (2)
  - TYPE IV HYPERSENSITIVITY REACTION [None]
  - INFUSION SITE HYPERSENSITIVITY [None]
